FAERS Safety Report 12375443 (Version 2)
Quarter: 2016Q2

REPORT INFORMATION
  Report Type: Spontaneous
  Country: TR (occurrence: TR)
  Receive Date: 20160517
  Receipt Date: 20160617
  Transmission Date: 20160815
  Serious: Yes (Life-Threatening, Hospitalization, Other)
  Sender: FDA-Public Use
  Company Number: TR-WATSON-2016-09927

PATIENT
  Age: 37 Year
  Sex: Male
  Weight: 74 kg

DRUGS (6)
  1. ULTRALAN                           /00226401/ [Concomitant]
     Indication: PRODUCT USED FOR UNKNOWN INDICATION
     Dosage: 20 MG, BID
     Route: 065
  2. DUACT [Concomitant]
     Active Substance: ACRIVASTINE\PSEUDOEPHEDRINE HYDROCHLORIDE
     Indication: INFLUENZA
     Dosage: UNK UNK, UNKNOWN
     Route: 065
  3. ARMANAKS [Suspect]
     Active Substance: NAPROXEN
     Indication: INFLUENZA
     Dosage: 550 MG, BID
     Route: 048
     Dates: start: 20160111, end: 20160112
  4. FLANTADIN [Concomitant]
     Active Substance: DEFLAZACORT
     Indication: PRODUCT USED FOR UNKNOWN INDICATION
     Dosage: 30 MG, BID
     Route: 065
     Dates: start: 20151120
  5. CRAVIT [Suspect]
     Active Substance: LEVOFLOXACIN
     Indication: INFLUENZA
     Dosage: 500 MG, DAILY
     Route: 048
     Dates: start: 20160111, end: 20160113
  6. COLCHICINE. [Concomitant]
     Active Substance: COLCHICINE
     Indication: BEHCET^S SYNDROME
     Dosage: UNK UNK, UNKNOWN
     Route: 065
     Dates: start: 20151120

REACTIONS (7)
  - Erythema multiforme [Not Recovered/Not Resolved]
  - Pruritus [Not Recovered/Not Resolved]
  - Rash pruritic [Recovered/Resolved with Sequelae]
  - Rash [Not Recovered/Not Resolved]
  - Onychomadesis [Recovering/Resolving]
  - Blister [Recovered/Resolved with Sequelae]
  - Rash generalised [Not Recovered/Not Resolved]

NARRATIVE: CASE EVENT DATE: 20160112
